FAERS Safety Report 8021989-8 (Version None)
Quarter: 2012Q1

REPORT INFORMATION
  Report Type: 
  Country: None (occurrence: None)
  Receive Date: 20120104
  Receipt Date: 20111223
  Transmission Date: 20120608
  Serious: Yes (Hospitalization, Other)
  Sender: FDA-Public Use
  Company Number: US-ELI_LILLY_AND_COMPANY-US201111004170

PATIENT
  Sex: Female

DRUGS (7)
  1. VITAMIN D [Concomitant]
  2. PRILOSEC [Concomitant]
  3. LIPITOR [Concomitant]
  4. CLARITIN [Concomitant]
  5. FORTEO [Suspect]
     Indication: OSTEOPOROSIS
     Dosage: 20 UG, QD
     Dates: start: 20100801
  6. TOPROL-XL [Concomitant]
  7. NORVASC [Concomitant]

REACTIONS (4)
  - WEIGHT BEARING DIFFICULTY [None]
  - HIP FRACTURE [None]
  - FALL [None]
  - GAIT DISTURBANCE [None]
